FAERS Safety Report 4309440-2 (Version None)
Quarter: 2004Q1

REPORT INFORMATION
  Report Type: 
  Country: None (occurrence: None)
  Receive Date: 20040301
  Receipt Date: 20040218
  Transmission Date: 20041129
  Serious: Yes (Hospitalization)
  Sender: FDA-Public Use
  Company Number: 2004011155

PATIENT
  Age: 81 Year
  Sex: Female
  Weight: 77 kg

DRUGS (4)
  1. AMLODIPINE [Suspect]
     Indication: HYPERTENSION
     Dates: start: 20030331, end: 20030515
  2. VASERETIC [Suspect]
     Indication: ILL-DEFINED DISORDER
  3. ROFECOXIB [Suspect]
     Indication: OSTEOARTHRITIS
     Dosage: ORAL
     Route: 048
     Dates: start: 20020715, end: 20030509
  4. CHONDROITIN SULFATE SODIUM (CHONDROITIN SULFATE SODIUM) [Suspect]
     Indication: ILL-DEFINED DISORDER
     Dates: start: 20030331

REACTIONS (4)
  - PAIN IN EXTREMITY [None]
  - PURPURA [None]
  - RASH PRURITIC [None]
  - SKIN ULCER [None]
